FAERS Safety Report 5421651-1 (Version None)
Quarter: 2007Q3

REPORT INFORMATION
  Report Type: 
  Country: None (occurrence: None)
  Receive Date: 20070817
  Receipt Date: 20060224
  Transmission Date: 20080115
  Serious: Yes (Death)
  Sender: FDA-Public Use
  Company Number: USBAX-L-20070013

PATIENT
  Sex: Female

DRUGS (3)
  1. NAVELBINE [Suspect]
     Indication: BREAST CANCER METASTATIC
     Dosage: 12.5 MG/M2  IV
     Route: 042
  2. DOCETAXEL [Suspect]
     Indication: BREAST CANCER METASTATIC
     Dosage: 25 MG/M2  IV
     Route: 042
  3. METHYLPREDNISOLONE [Suspect]
     Indication: BREAST CANCER METASTATIC
     Dosage: 40 MG IV
     Route: 042

REACTIONS (2)
  - FEBRILE NEUTROPENIA [None]
  - INFECTION [None]
